FAERS Safety Report 8131200 (Version 3)
Quarter: 2012Q4

REPORT INFORMATION
  Report Type: 
  Country: US (occurrence: US)
  Receive Date: 20110912
  Receipt Date: 20120910
  Transmission Date: 20130627
  Serious: Yes (Hospitalization)
  Sender: FDA-Public Use
  Company Number: US-US-EMD SERONO, INC.-7081059

PATIENT
  Age: 50 Year
  Sex: Female
  Weight: 49 kg

DRUGS (5)
  1. REBIF [Suspect]
     Indication: MULTIPLE SCLEROSIS
     Route: 058
     Dates: start: 20110622, end: 201107
  2. REBIF [Suspect]
     Route: 058
     Dates: start: 201108
  3. TYLENOL [Concomitant]
     Indication: PREMEDICATION
  4. UNSPECIFIED ALLERGY PILL [Concomitant]
     Indication: SINUS DISORDER
  5. IBUPROFEN [Concomitant]
     Indication: PREMEDICATION

REACTIONS (7)
  - Cholelithiasis [Recovered/Resolved]
  - Hepatic cyst [Recovered/Resolved]
  - Laboratory test abnormal [Recovered/Resolved]
  - Insomnia [Unknown]
  - Feeling of body temperature change [Unknown]
  - Pain [Unknown]
  - Injection site pain [Unknown]
